FAERS Safety Report 18288511 (Version 1)
Quarter: 2020Q3

REPORT INFORMATION
  Report Type: Spontaneous
  Country: US (occurrence: US)
  Receive Date: 20200921
  Receipt Date: 20200921
  Transmission Date: 20201103
  Serious: No
  Sender: FDA-Public Use
  Company Number: US-ASTRAZENECA-2020SF16590

PATIENT
  Age: 68 Year
  Sex: Male

DRUGS (5)
  1. HYDROXYCHLORIQUINE [Concomitant]
     Active Substance: HYDROXYCHLOROQUINE
  2. LIVALO [Concomitant]
     Active Substance: PITAVASTATIN CALCIUM
  3. METOPROLOL. [Suspect]
     Active Substance: METOPROLOL
     Route: 065
  4. SULFASALAZINE. [Concomitant]
     Active Substance: SULFASALAZINE
  5. CRESTOR [Suspect]
     Active Substance: ROSUVASTATIN CALCIUM
     Route: 048

REACTIONS (1)
  - Fatigue [Not Recovered/Not Resolved]
